FAERS Safety Report 10462180 (Version 4)
Quarter: 2014Q4

REPORT INFORMATION
  Report Type: Spontaneous
  Country: IT (occurrence: IT)
  Receive Date: 20140918
  Receipt Date: 20141202
  Transmission Date: 20150528
  Serious: Yes (Hospitalization)
  Sender: FDA-Public Use
  Company Number: IT-BRISTOL-MYERS SQUIBB COMPANY-21388251

PATIENT
  Age: 87 Year
  Sex: Male

DRUGS (10)
  1. PROSCAR [Concomitant]
     Active Substance: FINASTERIDE
  2. COUMADIN [Suspect]
     Active Substance: WARFARIN SODIUM
     Indication: CEREBROVASCULAR ACCIDENT
     Dosage: LAST DOSE:1SEP14
     Route: 048
     Dates: start: 20130101
  3. ZAROXOLYN [Concomitant]
     Active Substance: METOLAZONE
  4. ANTRA [Concomitant]
     Active Substance: OMEPRAZOLE
  5. LASIX [Concomitant]
     Active Substance: FUROSEMIDE
     Indication: HYPERTENSION
  6. TORVAST [Concomitant]
     Active Substance: ATORVASTATIN
  7. ZYLORIC [Concomitant]
     Active Substance: ALLOPURINOL
  8. DILATREND [Concomitant]
     Active Substance: CARVEDILOL
  9. NOVORAPID [Concomitant]
     Active Substance: INSULIN ASPART
     Indication: DIABETES MELLITUS
  10. MINITRAN [Concomitant]
     Active Substance: NITROGLYCERIN
     Indication: HYPERTENSION

REACTIONS (2)
  - Bladder cancer [Unknown]
  - Haematuria [Unknown]

NARRATIVE: CASE EVENT DATE: 20140824
